FAERS Safety Report 4612088-3 (Version None)
Quarter: 2005Q2

REPORT INFORMATION
  Report Type: 
  Country: None (occurrence: None)
  Receive Date: 20050308
  Receipt Date: 20041129
  Transmission Date: 20051028
  Serious: Yes (Other)
  Sender: FDA-Public Use
  Company Number: 2004UW24403

PATIENT
  Age: 56 Year
  Sex: Male
  Weight: 122.46 kg

DRUGS (3)
  1. CRESTOR [Suspect]
     Indication: BLOOD CHOLESTEROL INCREASED
     Dosage: 10 MG PO
     Route: 048
  2. ZESTRIL [Concomitant]
  3. ALLEGRA [Concomitant]

REACTIONS (1)
  - SALIVARY HYPERSECRETION [None]
